FAERS Safety Report 12358904 (Version 1)
Quarter: 2016Q2

REPORT INFORMATION
  Report Type: Spontaneous
  Country: US (occurrence: None)
  Receive Date: 20160511
  Receipt Date: 20160511
  Transmission Date: 20160815
  Serious: Yes (Hospitalization)
  Sender: FDA-Public Use
  Company Number: None

PATIENT
  Age: 71 Year
  Sex: Male
  Weight: 107.5 kg

DRUGS (2)
  1. TOO MANY TO LIST AT THIS TIME [Concomitant]
  2. JANUVIA [Suspect]
     Active Substance: SITAGLIPTIN PHOSPHATE
     Indication: DIABETES MELLITUS
     Route: 048
     Dates: end: 20160422

REACTIONS (6)
  - Pneumonia [None]
  - Renal cancer [None]
  - Vomiting [None]
  - Myalgia [None]
  - Pain [None]
  - Renal disorder [None]

NARRATIVE: CASE EVENT DATE: 20160422
